FAERS Safety Report 14330268 (Version 3)
Quarter: 2018Q1

REPORT INFORMATION
  Report Type: Report from Study
  Country: None (occurrence: US)
  Receive Date: 20171227
  Receipt Date: 20180212
  Transmission Date: 20180509
  Serious: Yes (Death, Other)
  Sender: FDA-Public Use
  Company Number: US-ABBVIE-17P-163-2205596-00

PATIENT
  Sex: Female

DRUGS (4)
  1. ALLOPURINOL. [Concomitant]
     Active Substance: ALLOPURINOL
     Indication: PRODUCT USED FOR UNKNOWN INDICATION
  2. VENCLEXTA [Suspect]
     Active Substance: VENETOCLAX
     Indication: MANTLE CELL LYMPHOMA
     Dosage: STARTER PACK
     Route: 048
     Dates: start: 20171215, end: 20171215
  3. BENADRYL [Concomitant]
     Active Substance: DIPHENHYDRAMINE HYDROCHLORIDE
     Indication: PRODUCT USED FOR UNKNOWN INDICATION
  4. VENCLEXTA [Suspect]
     Active Substance: VENETOCLAX
     Route: 048
     Dates: start: 20171219

REACTIONS (12)
  - Loss of consciousness [Unknown]
  - Haemorrhage [Unknown]
  - Dyspnoea [Not Recovered/Not Resolved]
  - Aphasia [Unknown]
  - Malignant neoplasm progression [Fatal]
  - Transfusion [Unknown]
  - Tremor [Unknown]
  - Pyrexia [Unknown]
  - Diarrhoea [Unknown]
  - Platelet count decreased [Unknown]
  - Confusional state [Unknown]
  - Monoplegia [Unknown]

NARRATIVE: CASE EVENT DATE: 20171226
